FAERS Safety Report 9749046 (Version 4)
Quarter: 2014Q2

REPORT INFORMATION
  Report Type: Spontaneous
  Country: US (occurrence: US)
  Receive Date: 20131212
  Receipt Date: 20140602
  Transmission Date: 20141212
  Serious: Yes (Other)
  Sender: FDA-Public Use
  Company Number: US-INCYTE CORPORATION-2013IN002189

PATIENT
  Age: 75 Year
  Sex: Female
  Weight: 47.6 kg

DRUGS (12)
  1. JAKAFI [Suspect]
     Indication: MYELOFIBROSIS
     Dosage: 15 MG, BID
     Route: 048
     Dates: start: 20130329
  2. JAKAFI [Suspect]
     Dosage: 15 MG, QD
     Route: 048
     Dates: start: 20130815
  3. LIPITOR [Concomitant]
     Dosage: 10 MG, UNK
     Route: 065
     Dates: start: 20070824
  4. LORAZEPAM [Concomitant]
     Dosage: 2 MG, UNK
     Route: 065
     Dates: start: 20070824
  5. DANAZOL [Concomitant]
     Dosage: 200 MG, BID
     Route: 065
  6. VITAMIN D [Concomitant]
     Dosage: 1000 UT, UNK
     Route: 065
  7. ZINC [Concomitant]
     Dosage: 30 MG, UNK
     Route: 065
  8. MAGNESIUM [Concomitant]
     Dosage: 400 MG, UNK
     Route: 065
  9. CALCIUM [Concomitant]
     Route: 065
  10. QUERCETIN [Concomitant]
     Route: 065
  11. BROMELAIN [Concomitant]
     Dosage: 100 MG, UNK
     Route: 065
  12. VITAMIN C [Concomitant]
     Dosage: 500 MG, UNK
     Route: 065

REACTIONS (6)
  - Dyspnoea [Not Recovered/Not Resolved]
  - Stomatitis [Not Recovered/Not Resolved]
  - Dry mouth [Not Recovered/Not Resolved]
  - Fatigue [Recovering/Resolving]
  - Dry throat [Recovered/Resolved]
  - Anaemia [Recovering/Resolving]
